FAERS Safety Report 5313234-9 (Version None)
Quarter: 2007Q2

REPORT INFORMATION
  Report Type: 
  Country: None (occurrence: None)
  Receive Date: 20070501
  Receipt Date: 20070420
  Transmission Date: 20071010
  Serious: Yes (Other)
  Sender: FDA-Public Use
  Company Number: PHBS2007JP05924

PATIENT
  Age: 78 Year
  Sex: Female

DRUGS (5)
  1. DIOVAN [Suspect]
     Indication: HYPERTENSION
     Dosage: 80 MG/DAY
     Route: 048
     Dates: start: 20070403
  2. DIOVAN [Suspect]
     Dosage: 80 MG, QD
     Route: 048
     Dates: start: 20070326, end: 20070329
  3. ALFAROL [Concomitant]
     Dosage: 0.5 MG, UNK
     Route: 048
  4. ZANTAC [Concomitant]
     Dosage: 75 MG, UNK
     Route: 048
  5. GANATON [Concomitant]
     Dosage: 100 MG, UNK
     Route: 048

REACTIONS (6)
  - ARRHYTHMIA [None]
  - CHEST DISCOMFORT [None]
  - FLUSHING [None]
  - HEADACHE [None]
  - NAUSEA [None]
  - PALPITATIONS [None]
